FAERS Safety Report 9226214 (Version 1)
Quarter: 2013Q2

REPORT INFORMATION
  Report Type: Spontaneous
  Country: FR (occurrence: FR)
  Receive Date: 20130411
  Receipt Date: 20130411
  Transmission Date: 20140414
  Serious: Yes (Death, Life-Threatening, Hospitalization, Other)
  Sender: FDA-Public Use
  Company Number: PHHY2013FR034318

PATIENT
  Age: 69 Year
  Sex: Male

DRUGS (9)
  1. FLUDARABINE [Suspect]
     Indication: CHRONIC LYMPHOCYTIC LEUKAEMIA
     Dosage: 25 OT, PAR DAY
     Route: 042
  2. VINCRISTINE [Suspect]
     Indication: CHRONIC LYMPHOCYTIC LEUKAEMIA
  3. PREDNISONE [Suspect]
     Indication: CHRONIC LYMPHOCYTIC LEUKAEMIA
  4. CYCLOPHOSPHAMIDE [Suspect]
     Indication: CHRONIC LYMPHOCYTIC LEUKAEMIA
     Dosage: 250 OT, PER DAY
     Route: 042
  5. RITUXIMAB [Suspect]
     Indication: CHRONIC LYMPHOCYTIC LEUKAEMIA
     Dosage: 375 MG/M2, ON DAY 1 OF CYCLE AND 500 MG/M2 ON DAY 15 OF CYCLE 1 AND ON DAY 1 OF CYCLE 2
     Route: 042
  6. BENDAMUSTINE [Concomitant]
     Indication: CHRONIC LYMPHOCYTIC LEUKAEMIA
  7. VALACYCLOVIR HYDROCHLORIDE [Concomitant]
     Indication: PROPHYLAXIS
     Dosage: 1 DF, BID
  8. COTRIMOXAZOLE [Concomitant]
     Indication: PROPHYLAXIS
     Dosage: 1 DF, THRICE WEEKLY
  9. PEGFILGRASTIM [Concomitant]

REACTIONS (10)
  - Chronic lymphocytic leukaemia [Fatal]
  - B-cell lymphoma [Fatal]
  - Malignant neoplasm progression [Fatal]
  - Meningitis cryptococcal [Recovered/Resolved]
  - Confusional state [Recovering/Resolving]
  - Somnolence [Recovering/Resolving]
  - Cerebral ventricle dilatation [Recovering/Resolving]
  - Ataxia [Recovering/Resolving]
  - Therapeutic response decreased [Unknown]
  - Weight decreased [Unknown]
